FAERS Safety Report 18153238 (Version 1)
Quarter: 2020Q3

REPORT INFORMATION
  Report Type: Spontaneous
  Country: US (occurrence: US)
  Receive Date: 20200815
  Receipt Date: 20200815
  Transmission Date: 20201103
  Serious: No
  Sender: FDA-Public Use
  Company Number: US-SUN PHARMACEUTICAL INDUSTRIES LTD-2020R1-249474

PATIENT
  Sex: Female
  Weight: 63.49 kg

DRUGS (1)
  1. TRAMADOL. [Suspect]
     Active Substance: TRAMADOL
     Indication: OSTEOARTHRITIS
     Dosage: 50 MILLIGRAM, 4?6 TIMES DAILY
     Route: 065
     Dates: start: 20130420

REACTIONS (1)
  - Ear discomfort [Not Recovered/Not Resolved]
